FAERS Safety Report 7465212-1 (Version None)
Quarter: 2011Q2

REPORT INFORMATION
  Report Type: 
  Country: None (occurrence: None)
  Receive Date: 20110509
  Receipt Date: 20110427
  Transmission Date: 20111010
  Serious: No
  Sender: FDA-Public Use
  Company Number: PHHY2011US23116

PATIENT
  Sex: Female

DRUGS (17)
  1. CALCIUM [Concomitant]
     Dosage: 500 PER DAY
  2. GLUCOSAMINE [Concomitant]
  3. SUCRALFATE [Concomitant]
  4. PSEUDOEPHEDRINE HCL [Concomitant]
  5. CHONDROITIN SULFATE [Concomitant]
  6. MELATONIN [Concomitant]
  7. METHOCARBAMOL [Concomitant]
  8. GABAPENTIN [Concomitant]
  9. ALPRAZOLAM [Concomitant]
  10. HYDROCODONE BITARTRATE [Concomitant]
  11. ACIPHEX [Concomitant]
     Dosage: UNK
  12. IBUPROFEN [Concomitant]
  13. TASIGNA [Suspect]
     Indication: CHRONIC MYELOID LEUKAEMIA
     Dosage: 400 MG, BID
     Route: 048
     Dates: start: 20110201
  14. MIRALAX [Concomitant]
  15. ONDANSETRON HYDROCHLORIDE [Concomitant]
  16. PROPRANOLOL HYDROCHLORIDE [Concomitant]
  17. ZOLPIDEM [Concomitant]

REACTIONS (3)
  - ARTHRALGIA [None]
  - FATIGUE [None]
  - NAUSEA [None]
